FAERS Safety Report 5267646-2 (Version None)
Quarter: 2007Q1

REPORT INFORMATION
  Report Type: 
  Country: None (occurrence: None)
  Receive Date: 20070316
  Receipt Date: 20070312
  Transmission Date: 20070707
  Serious: Yes (Hospitalization)
  Sender: FDA-Public Use
  Company Number: ES-MERCK-0703ESP00027

PATIENT
  Age: 69 Year
  Sex: Male

DRUGS (8)
  1. ZOCOR [Suspect]
     Indication: HYPERCHOLESTEROLAEMIA
     Route: 048
  2. DILTIAZEM HYDROCHLORIDE [Concomitant]
     Route: 065
  3. CYCLOSPORINE [Concomitant]
     Route: 065
     Dates: start: 19910101
  4. AZATHIOPRINE [Concomitant]
     Route: 065
     Dates: start: 19910101
  5. PENTOXIFYLLINE [Concomitant]
     Route: 065
  6. PANTOPRAZOLE [Concomitant]
     Route: 065
  7. ACENOCOUMAROL [Suspect]
     Indication: PULMONARY EMBOLISM
     Route: 065
  8. REPAGLINIDE [Concomitant]
     Route: 065

REACTIONS (2)
  - DRUG INTERACTION [None]
  - RHABDOMYOLYSIS [None]
